FAERS Safety Report 10615611 (Version 2)
Quarter: 2014Q4

REPORT INFORMATION
  Report Type: Spontaneous
  Country: US (occurrence: US)
  Receive Date: 20141201
  Receipt Date: 20141201
  Transmission Date: 20150529
  Serious: Yes (Disabling)
  Sender: FDA-Public Use
  Company Number: US-009507513-1204USA04470

PATIENT
  Sex: Male
  Weight: 62.13 kg

DRUGS (2)
  1. PROPECIA [Suspect]
     Active Substance: FINASTERIDE
     Dosage: 1 MG, DAILY
     Route: 048
     Dates: start: 20050824, end: 20060523
  2. PROPECIA [Suspect]
     Active Substance: FINASTERIDE
     Indication: ANDROGENETIC ALOPECIA
     Dosage: 1 MG, DAILY
     Route: 048
     Dates: start: 20020823, end: 20040103

REACTIONS (16)
  - Loss of libido [Not Recovered/Not Resolved]
  - Blood testosterone increased [Unknown]
  - Depression [Not Recovered/Not Resolved]
  - Anxiety [Not Recovered/Not Resolved]
  - Sexual dysfunction [Not Recovered/Not Resolved]
  - Epididymal cyst [Unknown]
  - Ejaculation failure [Not Recovered/Not Resolved]
  - Drug ineffective [Unknown]
  - Stress [Unknown]
  - Glycosuria [Recovered/Resolved]
  - Cognitive disorder [Not Recovered/Not Resolved]
  - Erectile dysfunction [Not Recovered/Not Resolved]
  - Sexual dysfunction [Not Recovered/Not Resolved]
  - Penile pain [Unknown]
  - Male orgasmic disorder [Unknown]
  - Drug ineffective [Unknown]

NARRATIVE: CASE EVENT DATE: 200602
